FAERS Safety Report 5157458-2 (Version None)
Quarter: 2006Q4

REPORT INFORMATION
  Report Type: 
  Country: None (occurrence: None)
  Receive Date: 20061116
  Receipt Date: 20061031
  Transmission Date: 20070319
  Serious: Yes (Death)
  Sender: FDA-Public Use
  Company Number: L06-USA-04699-03

PATIENT
  Age: 46 Year

DRUGS (3)
  1. CARBAMAZEPINE [Suspect]
  2. MIRTAZAPINE [Suspect]
  3. CLONAZEPAM [Suspect]

REACTIONS (5)
  - CARDIAC ARREST [None]
  - COMPLETED SUICIDE [None]
  - MULTIPLE DRUG OVERDOSE [None]
  - POISONING [None]
  - RESPIRATORY ARREST [None]
